FAERS Safety Report 5147245-3 (Version None)
Quarter: 2006Q4

REPORT INFORMATION
  Report Type: 
  Country: None (occurrence: None)
  Receive Date: 20061103
  Receipt Date: 20061024
  Transmission Date: 20070319
  Serious: Yes (Death)
  Sender: FDA-Public Use
  Company Number: ACO_0277_2006

PATIENT
  Age: 12 Month
  Sex: Female

DRUGS (4)
  1. TIZANIDINE HCL [Suspect]
     Dosage: DF PO
     Route: 048
  2. ACETAMINOPHEN AND HYDROCODONE BITARTRATE [Suspect]
     Dosage: DF PO
  3. TRAMADOL HCL [Suspect]
     Dosage: DF PO
     Route: 048
  4. MIRTAZAPINE [Suspect]
     Dosage: DF PO
     Route: 048

REACTIONS (5)
  - ACCIDENTAL DRUG INTAKE BY CHILD [None]
  - APNOEA [None]
  - CARDIO-RESPIRATORY ARREST [None]
  - COMA [None]
  - CONVULSION [None]
